FAERS Safety Report 8358575-6 (Version None)
Quarter: 2012Q2

REPORT INFORMATION
  Report Type: 
  Country: None (occurrence: None)
  Receive Date: 20120514
  Receipt Date: 20120509
  Transmission Date: 20120825
  Serious: No
  Sender: FDA-Public Use
  Company Number: US-PFIZER INC-2012113317

PATIENT
  Sex: Male
  Weight: 77.09 kg

DRUGS (3)
  1. LIPITOR [Suspect]
     Indication: BLOOD CHOLESTEROL INCREASED
     Dosage: UNK
     Route: 048
     Dates: start: 20030101, end: 20040101
  2. DICLOFENAC [Concomitant]
     Indication: BACK PAIN
     Dosage: 75 MG, BID, PRN
     Route: 048
     Dates: start: 19970101
  3. METHOCARBAMOL [Concomitant]
     Indication: BACK PAIN
     Dosage: 500 MG, BID, PRN
     Route: 048
     Dates: start: 19970101

REACTIONS (2)
  - ARTHRALGIA [None]
  - PAIN IN EXTREMITY [None]
